FAERS Safety Report 17068602 (Version 1)
Quarter: 2019Q4

REPORT INFORMATION
  Report Type: Report from Study
  Country: US (occurrence: US)
  Receive Date: 20191123
  Receipt Date: 20191123
  Transmission Date: 20200122
  Serious: No
  Sender: FDA-Public Use
  Company Number: US-PURDUE-USA-2019-0146797

PATIENT
  Sex: Male
  Weight: 93.42 kg

DRUGS (6)
  1. HYDROCODONE BITARTRATE. [Suspect]
     Active Substance: HYDROCODONE BITARTRATE
     Indication: INTERVERTEBRAL DISC DISORDER
  2. ANTIBIOTICS [Concomitant]
     Active Substance: UNSPECIFIED INGREDIENT
     Indication: EAR INFECTION
     Route: 048
  3. HYDROCODONE BITARTRATE. [Suspect]
     Active Substance: HYDROCODONE BITARTRATE
     Indication: GENERAL PHYSICAL HEALTH DETERIORATION
  4. ANTIBIOTICS [Concomitant]
     Active Substance: UNSPECIFIED INGREDIENT
     Indication: SINUSITIS
  5. ANTIBIOTICS [Concomitant]
     Active Substance: UNSPECIFIED INGREDIENT
     Indication: INTERVERTEBRAL DISC DISORDER
  6. HYDROCODONE BITARTRATE. [Suspect]
     Active Substance: HYDROCODONE BITARTRATE
     Indication: PAIN
     Dosage: 20 MG, DAILY
     Route: 048
     Dates: start: 20161018

REACTIONS (7)
  - Pain [Recovered/Resolved]
  - Ear infection [Unknown]
  - Product dose omission [Recovered/Resolved]
  - Influenza [Unknown]
  - Blood pressure increased [Recovered/Resolved]
  - Sinusitis [Unknown]
  - Ear discomfort [Unknown]
